FAERS Safety Report 7355391-9 (Version None)
Quarter: 2011Q1

REPORT INFORMATION
  Report Type: 
  Country: None (occurrence: None)
  Receive Date: 20110316
  Receipt Date: 20110314
  Transmission Date: 20110831
  Serious: Yes (Other)
  Sender: FDA-Public Use
  Company Number: US-ROCHE-765356

PATIENT
  Sex: Male

DRUGS (2)
  1. ACCUTANE [Suspect]
     Route: 065
     Dates: start: 19990801, end: 20000501
  2. ACCUTANE [Suspect]
     Route: 065
     Dates: start: 20020901, end: 20030601

REACTIONS (4)
  - ABDOMINAL PAIN [None]
  - IRRITABLE BOWEL SYNDROME [None]
  - CONSTIPATION [None]
  - DIARRHOEA [None]
